FAERS Safety Report 6973222-3 (Version None)
Quarter: 2010Q3

REPORT INFORMATION
  Report Type: 
  Country: None (occurrence: None)
  Receive Date: 20100909
  Receipt Date: 20100902
  Transmission Date: 20110219
  Serious: Yes (Hospitalization, Other)
  Sender: FDA-Public Use
  Company Number: US-ELI_LILLY_AND_COMPANY-US201006003254

PATIENT
  Sex: Female

DRUGS (1)
  1. HUMATROPE [Suspect]
     Indication: HYPOPITUITARISM
     Dosage: 0.3 MG, UNKNOWN

REACTIONS (4)
  - HOSPITALISATION [None]
  - HYPOGLYCAEMIA [None]
  - MALAISE [None]
  - OXYGEN CONSUMPTION DECREASED [None]
